FAERS Safety Report 20675574 (Version 3)
Quarter: 2022Q2

REPORT INFORMATION
  Report Type: Report from Study
  Country: US (occurrence: US)
  Receive Date: 20220405
  Receipt Date: 20220624
  Transmission Date: 20220721
  Serious: Yes (Other)
  Sender: FDA-Public Use
  Company Number: US-MYLANLABS-2022M1000223

PATIENT
  Sex: Male
  Weight: 102.06 kg

DRUGS (8)
  1. GLATIRAMER ACETATE [Suspect]
     Active Substance: GLATIRAMER ACETATE
     Indication: Multiple sclerosis
     Dosage: 40 MILLIGRAM, 3XW
     Route: 058
  2. GLATIRAMER ACETATE [Suspect]
     Active Substance: GLATIRAMER ACETATE
     Indication: Relapsing-remitting multiple sclerosis
     Dosage: 40 MILLIGRAM, 3XW
     Route: 058
     Dates: start: 202111
  3. LEVOTHYROXINE [Concomitant]
     Active Substance: LEVOTHYROXINE
     Indication: Product used for unknown indication
     Dosage: UNK
     Route: 065
  4. BUPROPION [Concomitant]
     Active Substance: BUPROPION
     Indication: Product used for unknown indication
     Dosage: UNK
     Route: 065
  5. LEXIPRON [Concomitant]
     Indication: Product used for unknown indication
     Dosage: UNK
     Route: 065
  6. XANAX [Concomitant]
     Active Substance: ALPRAZOLAM
     Indication: Product used for unknown indication
     Dosage: UNK
     Route: 065
  7. GABAPENTIN [Concomitant]
     Active Substance: GABAPENTIN
     Dosage: UNK
     Route: 065
  8. RISPERIDONE [Concomitant]
     Active Substance: RISPERIDONE
     Dosage: UNK
     Route: 065

REACTIONS (12)
  - Multiple sclerosis relapse [Unknown]
  - Loss of consciousness [Unknown]
  - Memory impairment [Not Recovered/Not Resolved]
  - Injection site pruritus [Recovered/Resolved]
  - Therapeutic product effect decreased [Unknown]
  - Hypoaesthesia [Unknown]
  - Throat tightness [Unknown]
  - Adverse reaction [Unknown]
  - Dizziness [Unknown]
  - Nausea [Unknown]
  - Blood pressure decreased [Unknown]
  - Weight fluctuation [Unknown]
